FAERS Safety Report 8702880 (Version 2)
Quarter: 2012Q4

REPORT INFORMATION
  Report Type: 
  Country: US (occurrence: US)
  Receive Date: 20120803
  Receipt Date: 20120907
  Transmission Date: 20130627
  Serious: Yes (Hospitalization, Other)
  Sender: FDA-Public Use
  Company Number: US-009507513-2012SP011815

PATIENT

DRUGS (6)
  1. NUVARING [Suspect]
     Indication: CONTRACEPTION
     Dosage: UNK
     Dates: start: 2009, end: 20090302
  2. METFORMIN [Concomitant]
  3. RANITIDINE [Concomitant]
  4. ALBUTEROL [Concomitant]
  5. TRAMADOL HYDROCHLORIDE [Suspect]
  6. CYMBALTA [Concomitant]

REACTIONS (19)
  - Leukopenia [Recovering/Resolving]
  - Pulmonary embolism [Unknown]
  - Gastrooesophageal reflux disease [Unknown]
  - Syncope [Unknown]
  - Diabetes mellitus [Unknown]
  - Asthma [Unknown]
  - Nephrolithiasis [Unknown]
  - Arthritis [Unknown]
  - Chest pain [Not Recovered/Not Resolved]
  - Visual impairment [Unknown]
  - Dizziness [Unknown]
  - Headache [Unknown]
  - Abdominal pain [Unknown]
  - Hepatic steatosis [Unknown]
  - Hepatic steatosis [Unknown]
  - Goitre [Unknown]
  - Cough [Unknown]
  - Ovarian cyst [Unknown]
  - Myocardial ischaemia [Unknown]
